FAERS Safety Report 14497644 (Version 1)
Quarter: 2018Q1

REPORT INFORMATION
  Report Type: Report from Study
  Country: IE (occurrence: IE)
  Receive Date: 20180207
  Receipt Date: 20180207
  Transmission Date: 20180509
  Serious: Yes (Other)
  Sender: FDA-Public Use
  Company Number: PHHY2018IE017590

PATIENT
  Age: 38 Year
  Sex: Male

DRUGS (1)
  1. GILENYA [Suspect]
     Active Substance: FINGOLIMOD HYDROCHLORIDE
     Indication: RELAPSING-REMITTING MULTIPLE SCLEROSIS
     Dosage: 0.5 MG, UNK
     Route: 048
     Dates: start: 20170426

REACTIONS (6)
  - Headache [Unknown]
  - Chest pain [Not Recovered/Not Resolved]
  - Multiple sclerosis relapse [Unknown]
  - Hyperreflexia [Not Recovered/Not Resolved]
  - Fatigue [Not Recovered/Not Resolved]
  - Hemiparaesthesia [Not Recovered/Not Resolved]

NARRATIVE: CASE EVENT DATE: 201801
